FAERS Safety Report 24235938 (Version 1)
Quarter: 2024Q3

REPORT INFORMATION
  Report Type: Spontaneous
  Country: AU (occurrence: AU)
  Receive Date: 20240822
  Receipt Date: 20240822
  Transmission Date: 20241017
  Serious: Yes (Other)
  Sender: NOVO NORDISK
  Company Number: None

PATIENT
  Age: 33 Year
  Sex: Female

DRUGS (4)
  1. OZEMPIC [Suspect]
     Active Substance: SEMAGLUTIDE
     Indication: Weight control
     Dosage: 25 MG, QW
     Dates: start: 20230615
  2. COMIRNATY [Concomitant]
     Indication: Product used for unknown indication
     Dosage: UNK
  3. LEXAPRO [Concomitant]
     Active Substance: ESCITALOPRAM OXALATE
     Indication: Depression
     Dosage: 20 MG
  4. LEXAPRO [Concomitant]
     Active Substance: ESCITALOPRAM OXALATE
     Indication: Anxiety

REACTIONS (9)
  - Depression [Recovering/Resolving]
  - Suicidal ideation [Unknown]
  - Feeling hot [Unknown]
  - Hyperhidrosis [Unknown]
  - Irritability [Unknown]
  - Mental disorder [Unknown]
  - Palpitations [Unknown]
  - Stress [Unknown]
  - Off label use [Unknown]

NARRATIVE: CASE EVENT DATE: 20230615
